FAERS Safety Report 24797181 (Version 3)
Quarter: 2025Q1

REPORT INFORMATION
  Report Type: Spontaneous
  Country: CH (occurrence: CH)
  Receive Date: 20250101
  Receipt Date: 20250117
  Transmission Date: 20250409
  Serious: Yes (Other)
  Sender: ALMUS
  Company Number: CH-ALMIRALL-CH-2024-3461

PATIENT
  Age: 65 Year
  Sex: Male

DRUGS (1)
  1. KLISYRI [Suspect]
     Active Substance: TIRBANIBULIN

REACTIONS (1)
  - Suicidal ideation [Unknown]
